FAERS Safety Report 7803237-4 (Version None)
Quarter: 2011Q4

REPORT INFORMATION
  Report Type: 
  Country: None (occurrence: None)
  Receive Date: 20111007
  Receipt Date: 20111003
  Transmission Date: 20120403
  Serious: Yes (Other)
  Sender: FDA-Public Use
  Company Number: US-SHIONOGI, INC-2011000167

PATIENT

DRUGS (3)
  1. CLONIDINE [Concomitant]
     Dosage: UNK
  2. CONCERTA [Concomitant]
     Dosage: UNK
  3. KAPVAY [Suspect]
     Indication: ATTENTION DEFICIT/HYPERACTIVITY DISORDER
     Dosage: 0.1 MG QHS
     Route: 048
     Dates: start: 20110720, end: 20110721

REACTIONS (4)
  - HALLUCINATION, VISUAL [None]
  - SCREAMING [None]
  - SOMNOLENCE [None]
  - INSOMNIA [None]
